FAERS Safety Report 13942419 (Version 2)
Quarter: 2017Q4

REPORT INFORMATION
  Report Type: Spontaneous
  Country: US (occurrence: US)
  Receive Date: 20170906
  Receipt Date: 20171016
  Transmission Date: 20180320
  Serious: Yes (Other)
  Sender: FDA-Public Use
  Company Number: US-SA-2017SA163700

PATIENT
  Age: 68 Year
  Sex: Female
  Weight: 54.88 kg

DRUGS (3)
  1. XYZAL ALLERGY 24HR [Suspect]
     Active Substance: LEVOCETIRIZINE DIHYDROCHLORIDE
     Indication: MULTIPLE ALLERGIES
     Route: 048
  2. PROTON PUMP INHIBITORS [Concomitant]
     Active Substance: UNSPECIFIED INGREDIENT
  3. PREDNISON [Concomitant]
     Active Substance: PREDNISONE

REACTIONS (3)
  - Mouth haemorrhage [Unknown]
  - Thrombocytopenia [Unknown]
  - Petechiae [Unknown]

NARRATIVE: CASE EVENT DATE: 20170824
